FAERS Safety Report 14445490 (Version 5)
Quarter: 2018Q2

REPORT INFORMATION
  Report Type: Report from Study
  Country: US (occurrence: US)
  Receive Date: 20180126
  Receipt Date: 20180509
  Transmission Date: 20180711
  Serious: Yes (Hospitalization)
  Sender: FDA-Public Use
  Company Number: US-GILEAD-2018-0317583

PATIENT
  Age: 44 Year
  Sex: Male

DRUGS (1)
  1. AMBRISENTAN [Suspect]
     Active Substance: AMBRISENTAN
     Indication: PRODUCT USED FOR UNKNOWN INDICATION
     Dosage: 10 MG, QD
     Route: 065
     Dates: start: 20160620

REACTIONS (11)
  - Abdominal pain [Unknown]
  - Muscle spasms [Not Recovered/Not Resolved]
  - Abdominal pain upper [Not Recovered/Not Resolved]
  - Vomiting [Not Recovered/Not Resolved]
  - Biliary tract disorder [Not Recovered/Not Resolved]
  - Nasopharyngitis [Not Recovered/Not Resolved]
  - Tension [Not Recovered/Not Resolved]
  - Infection [Unknown]
  - Pain [Not Recovered/Not Resolved]
  - Intra-abdominal fluid collection [Unknown]
  - Tooth loss [Unknown]

NARRATIVE: CASE EVENT DATE: 20180504
